FAERS Safety Report 8097507-5 (Version None)
Quarter: 2012Q1

REPORT INFORMATION
  Report Type: 
  Country: None (occurrence: None)
  Receive Date: 20120130
  Receipt Date: 20120118
  Transmission Date: 20120608
  Serious: Yes (Hospitalization, Other)
  Sender: FDA-Public Use
  Company Number: US-BRISTOL-MYERS SQUIBB COMPANY-16336901

PATIENT
  Age: 34 Year
  Sex: Female
  Weight: 30 kg

DRUGS (4)
  1. DILAUDID [Concomitant]
     Indication: PAIN PROPHYLAXIS
     Dosage: 1 Q2
     Route: 042
  2. FENTANYL [Concomitant]
  3. TAXOL [Suspect]
     Indication: OESOPHAGEAL SQUAMOUS CELL CARCINOMA
     Dosage: LAST DOSE:10JAN2012
     Route: 042
     Dates: start: 20111227
  4. CISPLATIN [Suspect]
     Indication: OESOPHAGEAL SQUAMOUS CELL CARCINOMA
     Dosage: LAST DOSE:10JAN2012
     Route: 042
     Dates: start: 20111227

REACTIONS (8)
  - SUPERIOR MESENTERIC ARTERY SYNDROME [None]
  - SMALL INTESTINAL OBSTRUCTION [None]
  - FEBRILE NEUTROPENIA [None]
  - ABDOMINAL PAIN [None]
  - STOMATITIS [None]
  - WEIGHT DECREASED [None]
  - BACTERAEMIA [None]
  - DEHYDRATION [None]
